FAERS Safety Report 23272810 (Version 2)
Quarter: 2024Q1

REPORT INFORMATION
  Report Type: Report from Study
  Country: MX (occurrence: None)
  Receive Date: 20231207
  Receipt Date: 20240104
  Transmission Date: 20240410
  Serious: Yes (Other)
  Sender: FDA-Public Use
  Company Number: 2023A235157

PATIENT
  Age: 25507 Day
  Sex: Female
  Weight: 92 kg

DRUGS (6)
  1. DAPAGLIFLOZIN [Suspect]
     Active Substance: DAPAGLIFLOZIN
     Indication: Cardiac failure
     Route: 048
     Dates: start: 202309
  2. IPRATROPIUM BROMIDE [Concomitant]
     Active Substance: IPRATROPIUM BROMIDE\IPRATROPIUM BROMIDE ANHYDROUS
     Dates: start: 20231129
  3. SERETIDE [Concomitant]
     Active Substance: FLUTICASONE PROPIONATE\SALMETEROL XINAFOATE
  4. ALBUTEROL [Concomitant]
     Active Substance: ALBUTEROL
  5. BECLOMETHASONE [Concomitant]
     Active Substance: BECLOMETHASONE
  6. ENTRESTO [Concomitant]
     Active Substance: SACUBITRIL\VALSARTAN
     Indication: Cardiac failure
     Dates: start: 20230901

REACTIONS (16)
  - Headache [Recovered/Resolved]
  - Dyspnoea [Recovering/Resolving]
  - Head discomfort [Recovering/Resolving]
  - Pneumonia [Recovering/Resolving]
  - Pharyngitis [Recovering/Resolving]
  - Tracheal disorder [Not Recovered/Not Resolved]
  - Blood pressure increased [Not Recovered/Not Resolved]
  - Blood pressure inadequately controlled [Not Recovered/Not Resolved]
  - Anxiety [Unknown]
  - Anger [Unknown]
  - Cough [Recovering/Resolving]
  - Productive cough [Recovering/Resolving]
  - Depressed mood [Unknown]
  - Hypersensitivity [Unknown]
  - Product dose omission issue [Unknown]
  - Off label use [Not Recovered/Not Resolved]

NARRATIVE: CASE EVENT DATE: 20231001
